FAERS Safety Report 10194077 (Version 1)
Quarter: 2014Q2

REPORT INFORMATION
  Report Type: Spontaneous
  Country: US (occurrence: US)
  Receive Date: 20140524
  Receipt Date: 20140524
  Transmission Date: 20141212
  Serious: No
  Sender: FDA-Public Use
  Company Number: US-SANOFI-AVENTIS-2013SA065494

PATIENT
  Age: 66 Year
  Sex: Female
  Weight: 120 kg

DRUGS (2)
  1. SOLOSTAR [Suspect]
     Indication: TYPE 2 DIABETES MELLITUS
     Dates: start: 2010
  2. LANTUS SOLOSTAR [Suspect]
     Indication: TYPE 2 DIABETES MELLITUS
     Dosage: 42-50 UNITS BID DOSE:42 UNIT(S)
     Route: 051
     Dates: start: 2010

REACTIONS (2)
  - Movement disorder [Unknown]
  - Injection site pain [Unknown]
